FAERS Safety Report 23570510 (Version 2)
Quarter: 2024Q3

REPORT INFORMATION
  Report Type: Spontaneous
  Country: CA (occurrence: CA)
  Receive Date: 20240227
  Receipt Date: 20240731
  Transmission Date: 20241017
  Serious: Yes (Congenital Anomaly, Other)
  Sender: ROCHE
  Company Number: CA-002147023-NVSC2024CA031605

PATIENT
  Sex: Female

DRUGS (8)
  1. OMALIZUMAB [Suspect]
     Active Substance: OMALIZUMAB
     Indication: Product used for unknown indication
     Route: 064
  2. DUPILUMAB [Suspect]
     Active Substance: DUPILUMAB
     Indication: Product used for unknown indication
     Route: 064
  3. FLUTICASONE FUROATE [Suspect]
     Active Substance: FLUTICASONE FUROATE
     Indication: Product used for unknown indication
     Route: 064
  4. MIRTAZAPINE [Suspect]
     Active Substance: MIRTAZAPINE
     Indication: Product used for unknown indication
     Route: 064
  5. TIOTROPIUM [Suspect]
     Active Substance: TIOTROPIUM
     Indication: Product used for unknown indication
     Route: 064
  6. VILANTEROL [Suspect]
     Active Substance: VILANTEROL
     Indication: Product used for unknown indication
     Route: 064
  7. PREDNISONE [Suspect]
     Active Substance: PREDNISONE
     Indication: Product used for unknown indication
     Route: 064
  8. PREDNISONE [Suspect]
     Active Substance: PREDNISONE
     Route: 064

REACTIONS (8)
  - Cleft palate [Unknown]
  - Hypopituitarism foetal [Unknown]
  - Hypothalamo-pituitary disorder [Unknown]
  - Pharyngeal disorder [Unknown]
  - Premature baby [Unknown]
  - Secondary hypogonadism [Unknown]
  - Foetal exposure during pregnancy [Unknown]
  - Hypopituitarism [Unknown]
